FAERS Safety Report 7550394-3 (Version None)
Quarter: 2011Q2

REPORT INFORMATION
  Report Type: 
  Country: None (occurrence: None)
  Receive Date: 20110615
  Receipt Date: 20110609
  Transmission Date: 20111010
  Serious: Yes (Life-Threatening, Hospitalization, Other)
  Sender: FDA-Public Use
  Company Number: JP-ROCHE-782021

PATIENT
  Sex: Female
  Weight: 52.2 kg

DRUGS (7)
  1. PEGINTERFERON ALFA-2A [Suspect]
     Indication: HEPATITIS C
     Route: 058
     Dates: start: 20110323, end: 20110602
  2. RIBAVIRIN [Suspect]
     Indication: HEPATITIS C
     Route: 048
     Dates: start: 20110323, end: 20110603
  3. CARBOCISTEINE [Suspect]
     Route: 048
     Dates: start: 20110602, end: 20110603
  4. TMC435 [Suspect]
     Indication: HEPATITIS C
     Route: 065
     Dates: start: 20110323
  5. LOXOPROFEN [Suspect]
     Dosage: SINGLE USE
     Route: 048
     Dates: start: 20110324, end: 20110603
  6. PRONASE [Suspect]
     Route: 048
     Dates: start: 20110602, end: 20110603
  7. TEPRENONE [Suspect]
     Dosage: SINGLE USA
     Route: 048
     Dates: start: 20110324, end: 20110603

REACTIONS (10)
  - RHINORRHOEA [None]
  - UPPER RESPIRATORY TRACT INFECTION [None]
  - CARDIAC FAILURE [None]
  - COLITIS [None]
  - VAGINAL DISCHARGE [None]
  - PYELONEPHRITIS [None]
  - PERITONITIS [None]
  - PHARYNGEAL ERYTHEMA [None]
  - MEASLES [None]
  - BETA HAEMOLYTIC STREPTOCOCCAL INFECTION [None]
